FAERS Safety Report 4852771-8 (Version None)
Quarter: 2005Q4

REPORT INFORMATION
  Report Type: 
  Country: None (occurrence: None)
  Receive Date: 20051125
  Receipt Date: 20050607
  Transmission Date: 20060501
  Serious: Yes (Other)
  Sender: FDA-Public Use
  Company Number: 2005BH000160

PATIENT
  Age: 43 Year
  Sex: Female

DRUGS (9)
  1. DIANEAL [Suspect]
     Dosage: IP
     Route: 033
  2. AMLODIPINE [Concomitant]
  3. CLONIDINE [Concomitant]
  4. CALCITRIOL [Concomitant]
  5. MIRALAX [Concomitant]
  6. FOLIC ACID [Concomitant]
  7. NIASPAN [Concomitant]
  8. ASPIRIN [Concomitant]
  9. RENAGEL [Concomitant]

REACTIONS (1)
  - PERITONITIS [None]
